FAERS Safety Report 8426909-X (Version None)
Quarter: 2012Q2

REPORT INFORMATION
  Report Type: 
  Country: None (occurrence: None)
  Receive Date: 20120611
  Receipt Date: 20120530
  Transmission Date: 20120825
  Serious: Yes (Other)
  Sender: FDA-Public Use
  Company Number: US-ROCHE-1061722

PATIENT
  Sex: Male
  Weight: 86.26 kg

DRUGS (3)
  1. SOTRET [Suspect]
     Indication: PRODUCT USED FOR UNKNOWN INDICATION
     Dates: start: 20061001, end: 20070331
  2. ACCUTANE [Suspect]
     Dates: start: 19840101
  3. ACCUTANE [Suspect]
     Indication: ACNE
     Dates: start: 19830101

REACTIONS (7)
  - INFLAMMATORY BOWEL DISEASE [None]
  - CROHN'S DISEASE [None]
  - COLITIS ULCERATIVE [None]
  - DEPRESSION [None]
  - ANXIETY [None]
  - IRRITABLE BOWEL SYNDROME [None]
  - RECTAL POLYP [None]
